FAERS Safety Report 22081266 (Version 9)
Quarter: 2024Q2

REPORT INFORMATION
  Report Type: Report from Study
  Country: US (occurrence: US)
  Receive Date: 20230309
  Receipt Date: 20240510
  Transmission Date: 20240715
  Serious: Yes (Other)
  Sender: FDA-Public Use
  Company Number: US-002147023-NVSC2023US049301

PATIENT
  Age: 45 Year
  Sex: Female

DRUGS (2)
  1. KESIMPTA [Suspect]
     Active Substance: OFATUMUMAB
     Indication: Multiple sclerosis
     Dosage: 20 DRP (GTT), QMO
     Route: 058
     Dates: start: 20221025
  2. KESIMPTA [Suspect]
     Active Substance: OFATUMUMAB
     Indication: Relapsing-remitting multiple sclerosis
     Dosage: UNK, QW
     Route: 065
     Dates: start: 202210, end: 202402

REACTIONS (10)
  - Multiple sclerosis [Unknown]
  - Secondary progressive multiple sclerosis [Unknown]
  - Livedo reticularis [Recovered/Resolved]
  - Rash [Recovered/Resolved]
  - Viral infection [Unknown]
  - Dyspnoea [Unknown]
  - Body temperature increased [Unknown]
  - Nausea [Recovered/Resolved]
  - Vomiting [Recovered/Resolved]
  - Pyrexia [Recovered/Resolved]

NARRATIVE: CASE EVENT DATE: 20230201
